FAERS Safety Report 8839466 (Version 1)
Quarter: 2012Q4

REPORT INFORMATION
  Report Type: 
  Country: US (occurrence: US)
  Receive Date: 20121015
  Receipt Date: 20121015
  Transmission Date: 20130627
  Serious: Yes (Other)
  Sender: FDA-Public Use
  Company Number: US-BAYER-2012-105270

PATIENT
  Age: 33 Year
  Sex: Female
  Weight: 81.18 kg

DRUGS (7)
  1. OCELLA [Suspect]
     Indication: CONTRACEPTION
     Dosage: UNK
     Dates: start: 201008, end: 201109
  2. TRAMADOL [Concomitant]
     Indication: PAIN
     Dosage: 50 mg, UNK
  3. HYDROCODONE/ACETAMINOPHEN [Concomitant]
     Indication: PAIN
     Dosage: 5-325 mg
  4. ONDANSETRON [Concomitant]
     Indication: NAUSEA
     Dosage: 4 mg, PRN
  5. AZITHROMYCIN [Concomitant]
     Dosage: 250 mg, UNK
  6. MOTRIN [Concomitant]
     Dosage: 800 mg, PRN
     Dates: start: 20110925, end: 20111015
  7. NORCO [Concomitant]

REACTIONS (2)
  - Pulmonary embolism [Recovered/Resolved]
  - Pulmonary infarction [None]
